FAERS Safety Report 15663293 (Version 2)
Quarter: 2021Q4

REPORT INFORMATION
  Report Type: Spontaneous
  Country: DE (occurrence: DE)
  Receive Date: 20181128
  Receipt Date: 20211209
  Transmission Date: 20220304
  Serious: Yes (Hospitalization, Other)
  Sender: FDA-Public Use
  Company Number: DE-AUROBINDO-AUR-APL-2018-056949

PATIENT
  Age: 75 Year
  Sex: Male
  Weight: 71.6 kg

DRUGS (12)
  1. OXALIPLATIN [Suspect]
     Active Substance: OXALIPLATIN
     Indication: Rectal cancer
     Dosage: 190 MILLIGRAM, CYCLICAL (190 MG, QCY)
     Route: 042
     Dates: start: 20180716, end: 20180716
  2. OXALIPLATIN [Suspect]
     Active Substance: OXALIPLATIN
     Dosage: 190 MILLIGRAM, CYCLICAL (190 MG, QCY)
     Route: 042
     Dates: start: 20180730, end: 20180730
  3. OXALIPLATIN [Suspect]
     Active Substance: OXALIPLATIN
     Dosage: 180 MILLIGRAM, CYCLICAL (180 MG, QCY)
     Route: 042
     Dates: start: 20180924
  4. AFLIBERCEPT [Suspect]
     Active Substance: AFLIBERCEPT
     Indication: Rectal cancer
     Dosage: 300 MILLIGRAM, CYCLICAL (300 MG, QCY)
     Route: 042
     Dates: start: 20180716, end: 20180716
  5. AFLIBERCEPT [Suspect]
     Active Substance: AFLIBERCEPT
     Dosage: 300 MILLIGRAM, CYCLICAL (300 MG, QCY)
     Route: 042
     Dates: start: 20180730, end: 20180730
  6. AFLIBERCEPT [Suspect]
     Active Substance: AFLIBERCEPT
     Dosage: 295 MILLIGRAM, CYCLICAL (295 MG, QCY)
     Route: 042
     Dates: start: 20180827
  7. FLUOROURACIL [Suspect]
     Active Substance: FLUOROURACIL
     Indication: Rectal cancer
     Dosage: 5320 MILLIGRAM, CYCLICAL (5320 MG, QCY)
     Route: 042
     Dates: start: 20180716, end: 20180716
  8. FLUOROURACIL [Suspect]
     Active Substance: FLUOROURACIL
     Dosage: 5320 MILLIGRAM, CYCLICAL (5320 MG, QCY)
     Route: 042
     Dates: start: 20180730, end: 20180730
  9. FLUOROURACIL [Suspect]
     Active Substance: FLUOROURACIL
     Dosage: 4422 MILLIGRAM, CYCLICAL (4422 MG, QCY)
     Route: 042
     Dates: start: 20180924
  10. LEUCOVORIN [Suspect]
     Active Substance: LEUCOVORIN
     Indication: Rectal cancer
     Dosage: 760 MILLIGRAM, CYCLICAL (760 MG, QCY)
     Route: 042
     Dates: start: 20180716, end: 20180716
  11. LEUCOVORIN [Suspect]
     Active Substance: LEUCOVORIN
     Dosage: 760 MILLIGRAM, CYCLICAL (760 MG, QCY)
     Route: 042
     Dates: start: 20180730, end: 20180730
  12. LEUCOVORIN [Suspect]
     Active Substance: LEUCOVORIN
     Dosage: 730 MILLIGRAM, CYCLICAL (730 MG, QCY)
     Route: 042
     Dates: start: 20180924

REACTIONS (3)
  - Angina pectoris [Recovered/Resolved]
  - Hyperkalaemia [Recovered/Resolved]
  - Decreased appetite [Not Recovered/Not Resolved]

NARRATIVE: CASE EVENT DATE: 20180731
